FAERS Safety Report 4427602-0 (Version None)
Quarter: 2004Q3

REPORT INFORMATION
  Report Type: 
  Country: None (occurrence: None)
  Receive Date: 20040812
  Receipt Date: 20031104
  Transmission Date: 20050211
  Serious: Yes (Other)
  Sender: FDA-Public Use
  Company Number: 2003-06503

PATIENT
  Age: 28 Year
  Sex: Female

DRUGS (4)
  1. EMTRICITABINE (EMTRICITABINE) [Suspect]
     Indication: HIV INFECTION
     Dosage: 200 MG, ONCE A DAY, ORAL
     Route: 048
  2. EFAVIRENZ (EFAVIRENZ) [Concomitant]
  3. LAMIVUDINE (LAMIVUDINE) [Concomitant]
  4. STAVUDINE (STAVUDINE) [Concomitant]

REACTIONS (4)
  - ABORTION SPONTANEOUS [None]
  - DRUG EXPOSURE DURING PREGNANCY [None]
  - PREGNANCY [None]
  - VAGINAL CANDIDIASIS [None]
